FAERS Safety Report 8327818-7 (Version None)
Quarter: 2012Q2

REPORT INFORMATION
  Report Type: 
  Country: None (occurrence: None)
  Receive Date: 20120502
  Receipt Date: 20120430
  Transmission Date: 20120825
  Serious: No
  Sender: FDA-Public Use
  Company Number: US-PFIZER INC-2012106817

PATIENT
  Sex: Male
  Weight: 72.562 kg

DRUGS (5)
  1. CHANTIX [Suspect]
     Dosage: 1 MG, 2X/DAY
     Dates: start: 20100101, end: 20100101
  2. CHANTIX [Suspect]
     Dosage: 0.5 MG, 2X/DAY
     Dates: start: 20100101, end: 20100101
  3. CHANTIX [Suspect]
     Indication: SMOKING CESSATION THERAPY
     Dosage: 0.5 MG, DAILY
     Dates: start: 20100101, end: 20100101
  4. CHANTIX [Suspect]
     Dosage: UNK
     Dates: start: 20100101, end: 20101101
  5. LIPITOR [Concomitant]
     Indication: BLOOD CHOLESTEROL INCREASED
     Dosage: 80 MG, DAILY

REACTIONS (1)
  - ABNORMAL DREAMS [None]
